FAERS Safety Report 10658517 (Version 1)
Quarter: 2014Q4

REPORT INFORMATION
  Report Type: Spontaneous
  Country: IT (occurrence: IT)
  Receive Date: 20141217
  Receipt Date: 20141217
  Transmission Date: 20150529
  Serious: Yes (Other)
  Sender: FDA-Public Use
  Company Number: IT-BRISTOL-MYERS SQUIBB COMPANY-21598057

PATIENT
  Age: 51 Year
  Sex: Male

DRUGS (3)
  1. REYATAZ [Suspect]
     Active Substance: ATAZANAVIR SULFATE
     Indication: ACUTE HIV INFECTION
     Dosage: 1DF=1UNIT
     Route: 048
     Dates: start: 20140318, end: 20141006
  2. NORVIR [Concomitant]
     Active Substance: RITONAVIR
     Dosage: 100 MG TABLETS^
     Route: 048
     Dates: start: 20140318, end: 20141005
  3. TRUVADA [Concomitant]
     Active Substance: EMTRICITABINE\TENOFOVIR DISOPROXIL FUMARATE
     Dosage: 200/245 MG TABLETS
     Route: 048
     Dates: start: 20140318, end: 20141005

REACTIONS (3)
  - Yellow skin [Recovering/Resolving]
  - Hyperbilirubinaemia [Recovering/Resolving]
  - Ocular icterus [Recovering/Resolving]

NARRATIVE: CASE EVENT DATE: 20141005
